FAERS Safety Report 9382060 (Version 3)
Quarter: 2013Q3

REPORT INFORMATION
  Report Type: Spontaneous
  Country: IT (occurrence: IT)
  Receive Date: 20130703
  Receipt Date: 20130813
  Transmission Date: 20140515
  Serious: Yes (Life-Threatening, Hospitalization)
  Sender: FDA-Public Use
  Company Number: IT-009507513-1307ITA000903

PATIENT
  Age: 44 Year
  Sex: Female

DRUGS (2)
  1. SECURGIN [Suspect]
     Indication: CONTRACEPTION
     Dosage: CONCENTRATION 0.15MG +0.02 MG; 1 DF, QD
     Route: 048
     Dates: start: 1994, end: 20041015
  2. EUTIROX [Concomitant]
     Dosage: UNK

REACTIONS (2)
  - Embolic stroke [Recovered/Resolved with Sequelae]
  - Deep vein thrombosis [Recovered/Resolved with Sequelae]
